FAERS Safety Report 5517807-X (Version None)
Quarter: 2007Q4

REPORT INFORMATION
  Report Type: 
  Country: None (occurrence: None)
  Receive Date: 20071114
  Receipt Date: 20071105
  Transmission Date: 20080405
  Serious: Yes (Other)
  Sender: FDA-Public Use
  Company Number: US-GILEAD-2007-0013803

PATIENT
  Sex: Female
  Weight: 83.082 kg

DRUGS (12)
  1. LETAIRIS [Suspect]
     Indication: PULMONARY HYPERTENSION
     Route: 048
     Dates: start: 20070808, end: 20071008
  2. COZAAR [Concomitant]
     Indication: HYPERTENSION
  3. LASIX [Concomitant]
     Indication: FLUID RETENTION
     Route: 048
     Dates: start: 20061201
  4. PREDNISONE TAB [Concomitant]
     Route: 048
     Dates: start: 20060901
  5. GLIPIZIDE [Concomitant]
     Indication: DIABETES MELLITUS
     Route: 048
     Dates: start: 20070301
  6. LIPITOR [Concomitant]
     Indication: BLOOD CHOLESTEROL
     Route: 048
     Dates: start: 20050801
  7. ACTONEL [Concomitant]
     Indication: OSTEOPOROSIS
  8. POTASSIUM CHLORIDE [Concomitant]
  9. CALCIUM [Concomitant]
     Indication: MEDICAL DIET
  10. ALBUTEROL [Concomitant]
     Indication: PULMONARY FIBROSIS
     Route: 055
  11. BENZONATATE [Concomitant]
     Indication: PULMONARY FIBROSIS
     Route: 048
     Dates: start: 20061201
  12. ASPIRIN [Concomitant]
     Route: 048

REACTIONS (3)
  - CHEST PAIN [None]
  - OEDEMA [None]
  - WEIGHT INCREASED [None]
